FAERS Safety Report 4895276-0 (Version None)
Quarter: 2006Q1

REPORT INFORMATION
  Report Type: 
  Country: None (occurrence: None)
  Receive Date: 20060123
  Receipt Date: 20060109
  Transmission Date: 20060701
  Serious: Yes (Hospitalization)
  Sender: FDA-Public Use
  Company Number: THYM-10674

PATIENT
  Age: 10 Year
  Sex: Female

DRUGS (3)
  1. THYMOGLOBULIN [Suspect]
     Indication: GRAFT VERSUS HOST DISEASE
     Dosage: 1.25 MG/KG QOD IV
     Route: 042
  2. PREDNISONE [Concomitant]
  3. CYCLOSPORINE [Concomitant]

REACTIONS (2)
  - CONVULSION [None]
  - HEPATOTOXICITY [None]
